FAERS Safety Report 4721911-3 (Version None)
Quarter: 2005Q3

REPORT INFORMATION
  Report Type: 
  Country: None (occurrence: None)
  Receive Date: 20050720
  Receipt Date: 20050708
  Transmission Date: 20060218
  Serious: Yes (Other)
  Sender: FDA-Public Use
  Company Number: 2005_000045

PATIENT
  Age: 17 Year
  Sex: Female

DRUGS (2)
  1. DEPOCYT [Suspect]
     Indication: ANAPLASTIC CHOROID PLEXUS PAPILLOMA
     Dosage: 35 MG; EVERY OTHER WEEK; INTRATHECAL
     Route: 037
     Dates: start: 20050615, end: 20050629
  2. DEXAMETHASONE [Concomitant]

REACTIONS (2)
  - INCONTINENCE [None]
  - LOSS OF CONSCIOUSNESS [None]
